FAERS Safety Report 21941627 (Version 1)
Quarter: 2023Q1

REPORT INFORMATION
  Report Type: Report from Study
  Country: US (occurrence: US)
  Receive Date: 20230202
  Receipt Date: 20230202
  Transmission Date: 20230417
  Serious: No
  Sender: FDA-Public Use
  Company Number: US-EXELIXIS-CABO-22055252

PATIENT
  Sex: Female

DRUGS (2)
  1. CABOMETYX [Suspect]
     Active Substance: CABOZANTINIB S-MALATE
     Indication: Renal cancer
     Dosage: 20 MG
     Dates: start: 202108
  2. CABOMETYX [Suspect]
     Active Substance: CABOZANTINIB S-MALATE
     Dosage: 20 MG

REACTIONS (7)
  - Blister [Unknown]
  - Asthenia [Not Recovered/Not Resolved]
  - Fatigue [Unknown]
  - Weight decreased [Unknown]
  - Dysphonia [Unknown]
  - Arthralgia [Unknown]
  - Eye pain [Unknown]
